FAERS Safety Report 5810617-5 (Version None)
Quarter: 2008Q3

REPORT INFORMATION
  Report Type: 
  Country: None (occurrence: None)
  Receive Date: 20080710
  Receipt Date: 20080703
  Transmission Date: 20090109
  Serious: Yes (Other)
  Sender: FDA-Public Use
  Company Number: 2008017544

PATIENT
  Sex: Female

DRUGS (1)
  1. LUDEN'S HONEY LEMON THROAT DROPS (MENTHOL) [Suspect]
     Indication: THROAT IRRITATION
     Dosage: ORAL
     Route: 048

REACTIONS (1)
  - DRUG DEPENDENCE [None]
